FAERS Safety Report 7804525-8 (Version None)
Quarter: 2011Q4

REPORT INFORMATION
  Report Type: 
  Country: None (occurrence: None)
  Receive Date: 20111010
  Receipt Date: 20111006
  Transmission Date: 20120403
  Serious: Yes (Death)
  Sender: FDA-Public Use
  Company Number: PHHY2011JP88942

PATIENT
  Sex: Male
  Weight: 55 kg

DRUGS (2)
  1. ALISKIREN [Suspect]
     Indication: HYPERTENSION
     Dosage: 150 MG, QD
     Route: 048
     Dates: start: 20101224
  2. CARVEDILOL [Concomitant]
     Indication: HYPERTENSION
     Dosage: 10 MG,
     Route: 048
     Dates: start: 20071214

REACTIONS (1)
  - PNEUMONIA [None]
